FAERS Safety Report 22009587 (Version 1)
Quarter: 2023Q1

REPORT INFORMATION
  Report Type: Spontaneous
  Country: US (occurrence: US)
  Receive Date: 20230220
  Receipt Date: 20230220
  Transmission Date: 20230418
  Serious: Yes (Other)
  Sender: FDA-Public Use
  Company Number: US-BEH-2023155231

PATIENT
  Sex: Female

DRUGS (6)
  1. RIASTAP [Suspect]
     Active Substance: FIBRINOGEN HUMAN
     Indication: Angiopathy
     Dosage: 2300 MILLIGRAM, BIW
     Route: 042
     Dates: start: 202001
  2. RIASTAP [Suspect]
     Active Substance: FIBRINOGEN HUMAN
     Indication: Coagulopathy
     Dosage: 2300 MILLIGRAM, DAILY AS NEEDED
     Route: 042
     Dates: start: 202001
  3. RIASTAP [Suspect]
     Active Substance: FIBRINOGEN HUMAN
     Indication: Pulmonary embolism
     Dosage: UNK, PRN
     Route: 065
  4. RIASTAP [Suspect]
     Active Substance: FIBRINOGEN HUMAN
     Indication: Factor I deficiency
  5. RIASTAP [Suspect]
     Active Substance: FIBRINOGEN HUMAN
     Indication: Haemorrhage prophylaxis
  6. RIASTAP [Suspect]
     Active Substance: FIBRINOGEN HUMAN
     Indication: Haemorrhage

REACTIONS (3)
  - Haemarthrosis [Unknown]
  - No adverse event [Unknown]
  - Off label use [Unknown]
